FAERS Safety Report 9856493 (Version 1)
Quarter: 2014Q1

REPORT INFORMATION
  Report Type: Spontaneous
  Country: IT (occurrence: IT)
  Receive Date: 20140130
  Receipt Date: 20140130
  Transmission Date: 20141002
  Serious: Yes (Life-Threatening)
  Sender: FDA-Public Use
  Company Number: IT-BAYER-2014-015942

PATIENT
  Age: 81 Year
  Sex: Male

DRUGS (7)
  1. CARDIOASPIRIN [Suspect]
     Indication: PLATELET AGGREGATION INHIBITION
     Dosage: DAILY DOSE 100 MG
     Route: 048
     Dates: start: 20110301, end: 20140125
  2. SINTROM [Suspect]
     Indication: ATRIAL FIBRILLATION
     Dosage: DAILY DOSE 1 DF
     Route: 048
     Dates: start: 20110301, end: 20140125
  3. VALPRESSION [Concomitant]
  4. LANOXIN [Concomitant]
  5. BISOPROLOL SANDOZ [Concomitant]
  6. PROVISACOR [Concomitant]
  7. ESOMEPRAZOLE [Concomitant]

REACTIONS (5)
  - Cerebral haemorrhage [Not Recovered/Not Resolved]
  - Dysarthria [Not Recovered/Not Resolved]
  - Hemiplegia [Not Recovered/Not Resolved]
  - Sopor [Not Recovered/Not Resolved]
  - Prothrombin time abnormal [Not Recovered/Not Resolved]
